FAERS Safety Report 13551683 (Version 2)
Quarter: 2017Q2

REPORT INFORMATION
  Report Type: Spontaneous
  Country: US (occurrence: US)
  Receive Date: 20170516
  Receipt Date: 20170519
  Transmission Date: 20170830
  Serious: No
  Sender: FDA-Public Use
  Company Number: US-ACTELION-A-NJ2017-153801

PATIENT
  Age: 66 Year
  Sex: Female
  Weight: 99.77 kg

DRUGS (1)
  1. TRACLEER [Suspect]
     Active Substance: BOSENTAN
     Indication: PULMONARY ARTERIAL HYPERTENSION
     Dosage: 62.5 MG, BID
     Route: 048
     Dates: start: 20170416

REACTIONS (15)
  - Abdominal pain upper [Unknown]
  - Bedridden [Unknown]
  - Abdominal discomfort [Unknown]
  - Headache [Unknown]
  - Dyspnoea [Unknown]
  - Feeling hot [Unknown]
  - Condition aggravated [Unknown]
  - Vomiting [Unknown]
  - Unevaluable event [Unknown]
  - Dizziness [Unknown]
  - Hyperhidrosis [Unknown]
  - Loss of personal independence in daily activities [Unknown]
  - Pyrexia [Unknown]
  - Fatigue [Unknown]
  - Nausea [Unknown]

NARRATIVE: CASE EVENT DATE: 201705
